FAERS Safety Report 18830313 (Version 1)
Quarter: 2021Q1

REPORT INFORMATION
  Report Type: Spontaneous
  Country: US (occurrence: US)
  Receive Date: 20210202
  Receipt Date: 20210202
  Transmission Date: 20210419
  Serious: Yes (Hospitalization)
  Sender: FDA-Public Use
  Company Number: None

PATIENT
  Age: 94 Year
  Sex: Male
  Weight: 61.2 kg

DRUGS (13)
  1. AZITHROMYCIN 500 MG PO DAILY [Concomitant]
  2. VITAMIN D 1,000 IU DAILY [Concomitant]
  3. METHYLPREDNISOLONE 40 MG IV ONCE [Concomitant]
     Dates: start: 20210128, end: 20210128
  4. ZINC 220 MG PO DAILY [Concomitant]
  5. CEFTRIAXONE 1 GM IV DAILY [Concomitant]
  6. CLOPIDOGREL 75 MG PO X1 [Concomitant]
     Dates: start: 20210128, end: 20210128
  7. COMBIVENT NEBS Q6H [Concomitant]
  8. VITAMIN C 1 GRAM DAILY [Concomitant]
  9. PANTOPRAZOLE 40 MG PO BID [Concomitant]
  10. BAMLANIVIMAB. [Suspect]
     Active Substance: BAMLANIVIMAB
     Indication: COVID-19
     Dosage: ?          OTHER FREQUENCY:ONE TIME;?
     Route: 042
     Dates: start: 20210127
  11. ATORVASTATIN 40 MG PO QHS [Concomitant]
  12. TAMSULOSIN 0.4 MG PO DAILY [Concomitant]
  13. EZETIMIBE 10 MG PO DAILY [Concomitant]

REACTIONS (7)
  - Chills [None]
  - Dyspnoea [None]
  - Pyrexia [None]
  - Pulmonary congestion [None]
  - Asthenia [None]
  - Headache [None]
  - Cough [None]

NARRATIVE: CASE EVENT DATE: 20210128
